FAERS Safety Report 7785334-5 (Version None)
Quarter: 2011Q3

REPORT INFORMATION
  Report Type: 
  Country: None (occurrence: None)
  Receive Date: 20110929
  Receipt Date: 20110927
  Transmission Date: 20111222
  Serious: Yes (Other)
  Sender: FDA-Public Use
  Company Number: US-PFIZER INC-2011230567

PATIENT
  Sex: Female
  Weight: 74.83 kg

DRUGS (7)
  1. WELLBUTRIN SR [Suspect]
     Indication: DEPRESSION
     Dosage: 150 MG, 2X/DAY
  2. LUMIGAN [Concomitant]
     Indication: GLAUCOMA
     Dosage: 1 GTT, DAILY
  3. CHANTIX [Suspect]
     Indication: SMOKING CESSATION THERAPY
     Dosage: 0.5 MG
     Dates: start: 20110701, end: 20110101
  4. CHANTIX [Suspect]
     Dosage: 1 MG, 2X/DAY
     Dates: start: 20110101, end: 20110919
  5. CHANTIX [Suspect]
     Dosage: UNK
     Dates: start: 20110101, end: 20110101
  6. ABILIFY [Concomitant]
     Indication: DEPRESSION
     Dosage: 15 MG, DAILY
  7. COMBIGAN [Concomitant]
     Indication: GLAUCOMA
     Dosage: 1 GTT, 2X/DAY
     Route: 047

REACTIONS (3)
  - PARANOIA [None]
  - DYSGEUSIA [None]
  - ABNORMAL DREAMS [None]
